FAERS Safety Report 17462075 (Version 2)
Quarter: 2022Q1

REPORT INFORMATION
  Report Type: Spontaneous
  Country: GB (occurrence: GB)
  Receive Date: 20200226
  Receipt Date: 20220302
  Transmission Date: 20220423
  Serious: Yes (Life-Threatening, Other)
  Sender: FDA-Public Use
  Company Number: None

PATIENT
  Age: 20 Year
  Sex: Female
  Weight: 55 kg

DRUGS (5)
  1. PREGABALIN [Suspect]
     Active Substance: PREGABALIN
     Indication: Product used for unknown indication
     Dosage: 100 MILLIGRAM, QD (50 MG,BID)
     Dates: start: 20191218
  2. RANITIDINE [Concomitant]
     Active Substance: RANITIDINE
     Dosage: 2 DOSAGE FORM, QD (1DF, BID)
     Dates: start: 20190821
  3. TRAMADOL [Concomitant]
     Active Substance: TRAMADOL
     Dosage: NO MORE THAN 200MG PER DAY AS PER CONSULTANT LE...
     Dates: start: 20190916
  4. MIDODRINE HYDROCHLORIDE [Concomitant]
     Active Substance: MIDODRINE HYDROCHLORIDE
     Dosage: AS INSTRUCTED BY CARDIOLOGY L (1 DF, TID)
     Dates: start: 20190930, end: 20191030
  5. Rigevidon [Concomitant]
     Dosage: 1 DOSAGE FORM, QD (AS DIRECTED)
     Dates: start: 20190819

REACTIONS (1)
  - Anaphylactic reaction [Recovered/Resolved]

NARRATIVE: CASE EVENT DATE: 20191225
